FAERS Safety Report 16367162 (Version 1)
Quarter: 2019Q2

REPORT INFORMATION
  Report Type: Spontaneous
  Country: ES (occurrence: ES)
  Receive Date: 20190529
  Receipt Date: 20190529
  Transmission Date: 20190711
  Serious: Yes (Hospitalization)
  Sender: FDA-Public Use
  Company Number: ES-TEVA-2019-ES-1055313

PATIENT
  Age: 74 Year
  Sex: Male
  Weight: 74 kg

DRUGS (3)
  1. CISPLATINO (644A) [Interacting]
     Active Substance: CISPLATIN
     Indication: BLADDER TRANSITIONAL CELL CARCINOMA STAGE III
     Dates: start: 20171018, end: 20171103
  2. VINBLASTINA (807A) [Interacting]
     Active Substance: VINBLASTINE
     Indication: BLADDER TRANSITIONAL CELL CARCINOMA STAGE III
     Dates: start: 20171018, end: 20171103
  3. METOTREXATO (418A) [Suspect]
     Active Substance: METHOTREXATE
     Indication: BLADDER TRANSITIONAL CELL CARCINOMA STAGE III
     Dates: start: 20171018, end: 20171103

REACTIONS (4)
  - Drug interaction [Unknown]
  - Neutropenia [Recovered/Resolved]
  - Thrombocytopenia [Recovered/Resolved]
  - Febrile neutropenia [Recovered/Resolved]

NARRATIVE: CASE EVENT DATE: 20171025
